FAERS Safety Report 7825418-6 (Version None)
Quarter: 2011Q3

REPORT INFORMATION
  Report Type: 
  Country: None (occurrence: None)
  Receive Date: 20110919
  Receipt Date: 20110909
  Transmission Date: 20111222
  Serious: No
  Sender: FDA-Public Use
  Company Number: WSDF_00798

PATIENT
  Sex: Female

DRUGS (2)
  1. IMMUNE GLOBULIN NOS [Concomitant]
  2. WINRHO SDF LIQUID [Suspect]
     Indication: IDIOPATHIC THROMBOCYTOPENIC PURPURA
     Dosage: INTRAVENOUS (NOT OTHERWISE SPECIFIED)
     Route: 042
     Dates: start: 20090201, end: 20090201

REACTIONS (2)
  - MEDICATION ERROR [None]
  - MALAISE [None]
